FAERS Safety Report 6626733-4 (Version None)
Quarter: 2010Q1

REPORT INFORMATION
  Report Type: 
  Country: None (occurrence: None)
  Receive Date: 20100311
  Receipt Date: 20100301
  Transmission Date: 20100710
  Serious: Yes (Hospitalization)
  Sender: FDA-Public Use
  Company Number: US-BIOGENIDEC-2010BI004107

PATIENT
  Age: 39 Year
  Sex: Female

DRUGS (2)
  1. TYSABRI [Suspect]
     Indication: MULTIPLE SCLEROSIS
     Route: 042
     Dates: start: 20080610, end: 20090917
  2. TYSABRI [Suspect]
     Route: 042
     Dates: start: 20100202

REACTIONS (2)
  - DECUBITUS ULCER [None]
  - WEIGHT INCREASED [None]
